FAERS Safety Report 25028811 (Version 6)
Quarter: 2025Q4

REPORT INFORMATION
  Report Type: Report from Study
  Country: JP (occurrence: JP)
  Receive Date: 20250302
  Receipt Date: 20251217
  Transmission Date: 20260118
  Serious: Yes (Hospitalization, Other)
  Sender: NOVARTIS
  Company Number: JP-002147023-NVSJ2025JP002637

PATIENT
  Age: 50 Year
  Sex: Male

DRUGS (2)
  1. FABHALTA [Suspect]
     Active Substance: IPTACOPAN HYDROCHLORIDE
     Indication: Paroxysmal nocturnal haemoglobinuria
     Dosage: 400 MG
     Route: 048
     Dates: start: 20241209, end: 20250216
  2. FABHALTA [Suspect]
     Active Substance: IPTACOPAN HYDROCHLORIDE
     Dosage: 400 MG
     Route: 048
     Dates: start: 20250225

REACTIONS (6)
  - Large intestine infection [Recovered/Resolved]
  - Abdominal distension [Recovered/Resolved]
  - Diarrhoea [Recovered/Resolved]
  - Haemoglobin decreased [Recovering/Resolving]
  - Platelet count decreased [Unknown]
  - Arthralgia [Recovered/Resolved]

NARRATIVE: CASE EVENT DATE: 20250201
